FAERS Safety Report 6469502-0 (Version None)
Quarter: 2009Q4

REPORT INFORMATION
  Report Type: 
  Country: None (occurrence: None)
  Receive Date: 20091203
  Receipt Date: 20071116
  Transmission Date: 20100525
  Serious: Yes (Other)
  Sender: FDA-Public Use
  Company Number: JP-ELI_LILLY_AND_COMPANY-JP200707006673

PATIENT
  Sex: Male
  Weight: 46.2 kg

DRUGS (9)
  1. PEMETREXED [Suspect]
     Indication: PLEURAL MESOTHELIOMA MALIGNANT
     Dosage: 700 MG, OTHER
     Route: 042
     Dates: start: 20070412, end: 20070622
  2. CISPLATIN [Suspect]
     Indication: PLEURAL MESOTHELIOMA MALIGNANT
     Dosage: 80 MG, OTHER
     Route: 042
     Dates: start: 20070412, end: 20070412
  3. CISPLATIN [Suspect]
     Dosage: 90 MG, OTHER
     Route: 042
     Dates: start: 20070510, end: 20070622
  4. PANVITAN [Concomitant]
     Dosage: 0.5 MG, DAILY (1/D)
     Route: 048
     Dates: start: 20070405, end: 20070725
  5. METHYCOBAL [Concomitant]
     Dosage: 1 MG, DAILY (1/D)
     Route: 048
     Dates: start: 20070405, end: 20070405
  6. METHYCOBAL [Concomitant]
     Dosage: 1 MG, DAILY (1/D)
     Route: 048
     Dates: start: 20070531, end: 20070531
  7. NORVASC [Concomitant]
     Indication: HYPERTENSION
     Dosage: 5 MG, DAILY (1/D)
     Route: 048
  8. DIART [Concomitant]
     Indication: HYPERTENSION
     Dosage: 60 MG, DAILY (1/D)
     Route: 048
  9. BLOPRESS [Concomitant]
     Indication: HYPERTENSION
     Dosage: 8 MG, DAILY (1/D)
     Route: 048

REACTIONS (1)
  - HYPONATRAEMIA [None]
